FAERS Safety Report 23600085 (Version 1)
Quarter: 2024Q1

REPORT INFORMATION
  Report Type: Spontaneous
  Country: BE (occurrence: BE)
  Receive Date: 20240306
  Receipt Date: 20240306
  Transmission Date: 20240410
  Serious: Yes (Other)
  Sender: FDA-Public Use
  Company Number: BE-HBP-2024BE030484

PATIENT
  Sex: Female

DRUGS (2)
  1. MECHLORETHAMINE HYDROCHLORIDE [Suspect]
     Active Substance: MECHLORETHAMINE HYDROCHLORIDE
     Indication: Cutaneous T-cell lymphoma
     Dosage: UNK, UNKNOWN
     Route: 065
  2. MECHLORETHAMINE HYDROCHLORIDE [Suspect]
     Active Substance: MECHLORETHAMINE HYDROCHLORIDE
     Dosage: UNK, 3/WEEK
     Route: 065
     Dates: start: 20240130, end: 20240213

REACTIONS (4)
  - Cutaneous T-cell lymphoma recurrent [Unknown]
  - Off label use [Unknown]
  - Application site dermatitis [Not Recovered/Not Resolved]
  - Application site vesicles [Not Recovered/Not Resolved]

NARRATIVE: CASE EVENT DATE: 20240130
